FAERS Safety Report 25350616 (Version 2)
Quarter: 2025Q2

REPORT INFORMATION
  Report Type: Spontaneous
  Country: US (occurrence: US)
  Receive Date: 20250523
  Receipt Date: 20250528
  Transmission Date: 20250717
  Serious: Yes (Other)
  Sender: SANOFI AVENTIS
  Company Number: US-MLMSERVICE-20250515-PI508085-00152-1

PATIENT
  Age: 74 Year
  Sex: Female

DRUGS (3)
  1. OXALIPLATIN [Suspect]
     Active Substance: OXALIPLATIN
     Indication: Adenocarcinoma of colon
  2. LEUCOVORIN [Suspect]
     Active Substance: LEUCOVORIN\LEUCOVORIN CALCIUM
     Indication: Adenocarcinoma of colon
  3. FLUOROURACIL [Suspect]
     Active Substance: FLUOROURACIL
     Indication: Adenocarcinoma of colon

REACTIONS (4)
  - Stress cardiomyopathy [Recovered/Resolved]
  - Chest pain [Recovered/Resolved]
  - Tachycardia [Recovered/Resolved]
  - Ventricular hypokinesia [Recovered/Resolved]
